FAERS Safety Report 21944512 (Version 3)
Quarter: 2024Q2

REPORT INFORMATION
  Report Type: Report from Study
  Country: JP (occurrence: JP)
  Receive Date: 20230202
  Receipt Date: 20240603
  Transmission Date: 20240716
  Serious: Yes (Other)
  Sender: FDA-Public Use
  Company Number: JP-GILEAD-2020-0494659

PATIENT
  Age: 6 Decade
  Sex: Male

DRUGS (4)
  1. BICTEGRAVIR\EMTRICITABINE\TENOFOVIR ALAFENAMIDE [Suspect]
     Active Substance: BICTEGRAVIR\EMTRICITABINE\TENOFOVIR ALAFENAMIDE
     Indication: HIV infection
     Dosage: 1 DOSAGE FORM, QD
     Route: 048
     Dates: start: 20200219, end: 20210407
  2. LOCOID [Concomitant]
     Active Substance: HYDROCORTISONE BUTYRATE
  3. XYZAL [Concomitant]
     Active Substance: LEVOCETIRIZINE DIHYDROCHLORIDE
     Indication: Folliculitis
  4. CYMBALTA [Concomitant]
     Active Substance: DULOXETINE HYDROCHLORIDE
     Indication: Neuropathy peripheral
     Dosage: UNK
     Dates: start: 20170412, end: 20220621

REACTIONS (2)
  - Blood triglycerides increased [Not Recovered/Not Resolved]
  - Hypertension [Recovering/Resolving]

NARRATIVE: CASE EVENT DATE: 20200701
